FAERS Safety Report 5277135-7 (Version None)
Quarter: 2007Q1

REPORT INFORMATION
  Report Type: 
  Country: None (occurrence: None)
  Receive Date: 20070322
  Receipt Date: 20070322
  Transmission Date: 20070707
  Serious: No
  Sender: FDA-Public Use
  Company Number: None

PATIENT
  Age: 43 Year
  Sex: Female
  Weight: 54.4316 kg

DRUGS (1)
  1. MINOCYCLINE HCL [Suspect]
     Indication: SKIN DISORDER
     Dates: start: 20070309, end: 20070320

REACTIONS (4)
  - DRUG DISPENSING ERROR [None]
  - HEADACHE [None]
  - STOMACH DISCOMFORT [None]
  - URTICARIA [None]
